FAERS Safety Report 7916708-7 (Version None)
Quarter: 2011Q4

REPORT INFORMATION
  Report Type: 
  Country: None (occurrence: None)
  Receive Date: 20111116
  Receipt Date: 20111111
  Transmission Date: 20120403
  Serious: Yes (Hospitalization, Other)
  Sender: FDA-Public Use
  Company Number: CZ-AMGEN-CZESP2011052656

PATIENT
  Age: 26 Year
  Sex: Male
  Weight: 79.365 kg

DRUGS (4)
  1. ETOPOSIDE [Concomitant]
     Indication: TESTIS CANCER
     Dosage: UNK
     Dates: start: 20110812
  2. NEULASTA [Suspect]
     Indication: CHEMOTHERAPY
     Dosage: 6 MG, UNK
     Route: 058
     Dates: start: 20111009
  3. BLEOMYCIN SULFATE [Concomitant]
     Indication: TESTIS CANCER
     Dosage: UNK
     Dates: start: 20110812
  4. CISPLATIN [Concomitant]
     Indication: TESTIS CANCER
     Dosage: UNK
     Dates: start: 20110812

REACTIONS (9)
  - ANGIOEDEMA [None]
  - RASH [None]
  - PHARYNGEAL OEDEMA [None]
  - SKIN SWELLING [None]
  - ANXIETY [None]
  - OEDEMA MUCOSAL [None]
  - WHEEZING [None]
  - VISUAL IMPAIRMENT [None]
  - DYSPNOEA [None]
